FAERS Safety Report 9541018 (Version 1)
Quarter: 2013Q3

REPORT INFORMATION
  Report Type: Spontaneous
  Country: US (occurrence: US)
  Receive Date: 20130922
  Receipt Date: 20130922
  Transmission Date: 20140515
  Serious: No
  Sender: FDA-Public Use
  Company Number: US-B.I. PHARMACEUTICALS,INC./RIDGEFIELD-2013-BI-28249BP

PATIENT
  Sex: Male

DRUGS (3)
  1. PRADAXA [Suspect]
     Indication: ATRIAL FIBRILLATION
     Dosage: 300 MG
     Route: 048
     Dates: start: 2011
  2. LIPITOR [Concomitant]
     Indication: BLOOD CHOLESTEROL INCREASED
     Route: 048
  3. AMIODARONE [Concomitant]
     Indication: HYPERTENSION
     Route: 048

REACTIONS (2)
  - Pruritus [Not Recovered/Not Resolved]
  - Hyperthyroidism [Recovered/Resolved]
